FAERS Safety Report 7007630-1 (Version None)
Quarter: 2010Q3

REPORT INFORMATION
  Report Type: 
  Country: None (occurrence: None)
  Receive Date: 20100922
  Receipt Date: 20100913
  Transmission Date: 20110219
  Serious: Yes (Other)
  Sender: FDA-Public Use
  Company Number: GB-PFIZER INC-2010110541

PATIENT
  Age: 66 Year
  Sex: Male
  Weight: 102 kg

DRUGS (7)
  1. AMLODIPINE BESYLATE [Interacting]
     Indication: BLOOD PRESSURE INCREASED
     Dosage: 10 MG, 1X/DAY
     Dates: end: 20100610
  2. AMLODIPINE BESYLATE [Interacting]
     Dosage: DAILY
     Dates: start: 20100421
  3. PREZISTA [Suspect]
     Indication: HIV INFECTION
     Dosage: 800 MG, 1X/DAY
     Route: 048
     Dates: start: 20100412
  4. RITONAVIR [Interacting]
     Indication: HIV INFECTION
     Dosage: 100 MG, 1X/DAY
     Route: 048
     Dates: start: 20100412
  5. RITONAVIR [Interacting]
     Dosage: 500 MG, 2X/DAY
  6. TRUVADA [Concomitant]
     Indication: HIV INFECTION
     Dosage: UNK
     Dates: start: 20100421
  7. FAMCICLOVIR [Concomitant]
     Indication: HERPES SIMPLEX
     Dosage: 500 MG, 2X/DAY

REACTIONS (3)
  - DRUG INTERACTION [None]
  - MERALGIA PARAESTHETICA [None]
  - OEDEMA PERIPHERAL [None]
